FAERS Safety Report 10748950 (Version 1)
Quarter: 2015Q1

REPORT INFORMATION
  Report Type: Spontaneous
  Country: US (occurrence: US)
  Receive Date: 20150129
  Receipt Date: 20150129
  Transmission Date: 20150721
  Serious: No
  Sender: FDA-Public Use
  Company Number: US-009507513-1501USA011265

PATIENT
  Sex: Male

DRUGS (4)
  1. AFRIN [Suspect]
     Active Substance: OXYMETAZOLINE
     Indication: NASOPHARYNGITIS
     Dosage: UNK, UNKNOWN
     Route: 045
     Dates: start: 20150123
  2. AFRIN [Suspect]
     Active Substance: OXYMETAZOLINE
     Indication: RESPIRATORY TRACT CONGESTION
  3. AFRIN [Suspect]
     Active Substance: OXYMETAZOLINE
     Indication: COUGH
  4. AFRIN [Suspect]
     Active Substance: OXYMETAZOLINE
     Indication: SNEEZING

REACTIONS (1)
  - Drug effect incomplete [Unknown]

NARRATIVE: CASE EVENT DATE: 20150123
